FAERS Safety Report 7072029-9 (Version None)
Quarter: 2010Q4

REPORT INFORMATION
  Report Type: 
  Country: None (occurrence: None)
  Receive Date: 20101029
  Receipt Date: 20100111
  Transmission Date: 20110411
  Serious: No
  Sender: FDA-Public Use
  Company Number: A0823506A

PATIENT
  Age: 56 Year
  Sex: Female

DRUGS (9)
  1. ADVAIR DISKUS 100/50 [Suspect]
     Indication: ASTHMA
     Dosage: 1PUFF PER DAY
     Route: 055
     Dates: start: 20091101
  2. THYROID MEDICATION [Concomitant]
  3. CHOLESTEROL REDUCING AGENT [Concomitant]
  4. ALLERGY MEDICATION [Concomitant]
  5. ALEVE (CAPLET) [Concomitant]
  6. VITAMIN D [Concomitant]
  7. ASPIRIN [Concomitant]
  8. DIAZEPAM [Concomitant]
  9. MIGRAINE MEDICATION [Concomitant]

REACTIONS (3)
  - DRUG INEFFECTIVE [None]
  - INHALATION THERAPY [None]
  - PRODUCT QUALITY ISSUE [None]
